FAERS Safety Report 20218316 (Version 3)
Quarter: 2022Q1

REPORT INFORMATION
  Report Type: Spontaneous
  Country: US (occurrence: US)
  Receive Date: 20211222
  Receipt Date: 20220109
  Transmission Date: 20220424
  Serious: No
  Sender: FDA-Public Use
  Company Number: US-SANOFI-00899706

PATIENT
  Age: 56 Year
  Sex: Female

DRUGS (1)
  1. LANTUS SOLOSTAR [Suspect]
     Active Substance: INSULIN GLARGINE
     Indication: Type 2 diabetes mellitus
     Dosage: 24 IU, QD
     Route: 065

REACTIONS (4)
  - Limb injury [Unknown]
  - Device issue [Unknown]
  - Blood glucose increased [Unknown]
  - Device use issue [Unknown]

NARRATIVE: CASE EVENT DATE: 20211228
